FAERS Safety Report 9404011 (Version 2)
Quarter: 2013Q3

REPORT INFORMATION
  Report Type: Spontaneous
  Country: FR (occurrence: FR)
  Receive Date: 20130717
  Receipt Date: 20130719
  Transmission Date: 20140515
  Serious: Yes (Life-Threatening, Hospitalization, Other)
  Sender: FDA-Public Use
  Company Number: FR-ASTRAZENECA-2013SE52558

PATIENT
  Age: 15654 Day
  Sex: Female

DRUGS (6)
  1. INEXIUM [Suspect]
     Indication: OESOPHAGITIS
     Route: 048
     Dates: start: 20130619, end: 20130619
  2. SUBUTEX [Concomitant]
  3. DOLIPRANE [Concomitant]
     Indication: ANALGESIC THERAPY
     Route: 048
     Dates: start: 20130618
  4. SPASFON [Concomitant]
     Indication: PAIN
     Route: 048
     Dates: start: 20130618
  5. SPECIAFOLDINE [Concomitant]
     Indication: BLOOD FOLATE DECREASED
     Route: 048
     Dates: start: 20130619
  6. ACUPAN [Concomitant]
     Indication: ANALGESIC THERAPY
     Route: 042
     Dates: start: 20130614

REACTIONS (8)
  - Lymphopenia [Recovered/Resolved]
  - Histiocytosis haematophagic [Unknown]
  - Folate deficiency [Unknown]
  - Iatrogenic injury [Unknown]
  - Condition aggravated [Recovered/Resolved]
  - Thrombocytopenia [Recovered/Resolved]
  - Neutropenia [Recovered/Resolved]
  - Leukopenia [Unknown]
